FAERS Safety Report 5178973-1 (Version None)
Quarter: 2006Q4

REPORT INFORMATION
  Report Type: 
  Country: None (occurrence: None)
  Receive Date: 20061215
  Receipt Date: 20061215
  Transmission Date: 20070319
  Serious: Yes (Other)
  Sender: FDA-Public Use
  Company Number: None

PATIENT
  Sex: Male
  Weight: 90.7194 kg

DRUGS (1)
  1. NORVASC [Suspect]
     Indication: HYPERTENSION
     Dosage: ONE TABLET A DAY ONE PER DAY PO
     Route: 048
     Dates: start: 20060917, end: 20061114

REACTIONS (4)
  - DRY MOUTH [None]
  - GINGIVAL BLEEDING [None]
  - SLEEP DISORDER [None]
  - SPERMATOZOA ABNORMAL [None]
